FAERS Safety Report 4562049-8 (Version None)
Quarter: 2005Q1

REPORT INFORMATION
  Report Type: 
  Country: None (occurrence: None)
  Receive Date: 20050125
  Receipt Date: 20050113
  Transmission Date: 20050727
  Serious: Yes (Death)
  Sender: FDA-Public Use
  Company Number: 2005014157

PATIENT
  Sex: Male

DRUGS (1)
  1. BENGAY SPA MENTHOL TOPICAL ANALGESIC CREAM (MENTHOL) [Suspect]
     Dosage: TOPICAL
     Route: 061

REACTIONS (1)
  - LEUKAEMIA [None]
